FAERS Safety Report 12440495 (Version 1)
Quarter: 2016Q2

REPORT INFORMATION
  Report Type: Spontaneous
  Country: BR (occurrence: BR)
  Receive Date: 20160606
  Receipt Date: 20160606
  Transmission Date: 20160815
  Serious: Yes (Hospitalization, Other)
  Sender: FDA-Public Use
  Company Number: US-ASTRAZENECA-2016SE55965

PATIENT
  Sex: Male
  Weight: 7.3 kg

DRUGS (2)
  1. SYNAGIS [Suspect]
     Active Substance: PALIVIZUMAB
     Indication: PRODUCT USED FOR UNKNOWN INDICATION
     Route: 030
  2. MOTILIUM [Concomitant]
     Active Substance: DOMPERIDONE

REACTIONS (2)
  - Acquired hydrocele [Unknown]
  - Pyrexia [Unknown]
